FAERS Safety Report 8831999 (Version 2)
Quarter: 2013Q2

REPORT INFORMATION
  Report Type: Report from Study
  Country: AU (occurrence: AU)
  Receive Date: 20121009
  Receipt Date: 20130606
  Transmission Date: 20140414
  Serious: Yes (Death, Other)
  Sender: FDA-Public Use
  Company Number: AU-ROCHE-1138799

PATIENT
  Sex: Male
  Weight: 72 kg

DRUGS (7)
  1. ZELBORAF [Suspect]
     Indication: METASTATIC MALIGNANT MELANOMA
     Route: 065
  2. ZELBORAF [Suspect]
     Route: 048
     Dates: start: 20120726, end: 20120729
  3. DIGOXIN [Concomitant]
     Indication: ATRIAL FIBRILLATION
     Dosage: DAILY
     Route: 048
     Dates: end: 20120730
  4. AMLODIPINE [Concomitant]
     Indication: HYPERTENSION
     Dosage: DAILY
     Route: 048
     Dates: end: 20120729
  5. METFORMIN [Concomitant]
     Indication: DIABETES MELLITUS
     Route: 048
     Dates: end: 20120729
  6. PARACETAMOL [Concomitant]
     Indication: PAIN
     Route: 048
     Dates: start: 20120728, end: 20120729
  7. DEXAMETHASONE [Concomitant]
     Indication: BRAIN OEDEMA
     Route: 048
     Dates: end: 20120730

REACTIONS (4)
  - Disease progression [Fatal]
  - Peritonitis [Fatal]
  - Lethargy [Unknown]
  - Rash [Unknown]
